FAERS Safety Report 8726737 (Version 2)
Quarter: 2012Q4

REPORT INFORMATION
  Report Type: Report from Study
  Country: US (occurrence: US)
  Receive Date: 20120816
  Receipt Date: 20121010
  Transmission Date: 20130627
  Serious: Yes (Life-Threatening, Hospitalization)
  Sender: FDA-Public Use
  Company Number: US-ROCHE-1080622

PATIENT
  Age: 48 Year
  Sex: Male
  Weight: 80 kg

DRUGS (14)
  1. CELLCEPT [Suspect]
     Indication: RENAL TRANSPLANT
     Route: 048
     Dates: start: 20100214, end: 20120129
  2. CELLCEPT [Suspect]
     Route: 048
     Dates: start: 20120131
  3. SIROLIMUS [Suspect]
     Indication: PROPHYLAXIS AGAINST TRANSPLANT REJECTION
     Route: 048
     Dates: start: 20100625, end: 20120131
  4. AMPHOTERICIN B [Suspect]
     Indication: PNEUMONIA CRYPTOCOCCAL
     Route: 042
     Dates: start: 20120108, end: 20120128
  5. PREDNISONE [Suspect]
     Indication: KIDNEY TRANSPLANT REJECTION
     Route: 065
  6. PREDNISONE [Suspect]
     Route: 048
     Dates: start: 20120108, end: 20120128
  7. PREDNISONE [Suspect]
     Route: 065
     Dates: start: 20110818
  8. HUMALOG [Concomitant]
     Dosage: CC
     Route: 058
  9. LANTUS [Concomitant]
     Dosage: QHS
     Route: 058
     Dates: start: 20110817
  10. LANTUS [Concomitant]
     Dosage: at bed time
     Route: 058
     Dates: start: 20120205
  11. AMLODIPINE [Concomitant]
     Route: 048
  12. ASPIRIN [Concomitant]
     Route: 048
  13. PANTOPRAZOLE [Concomitant]
     Route: 048
  14. MOXIFLOXACIN [Concomitant]
     Route: 065

REACTIONS (2)
  - Pneumonia cryptococcal [Recovered/Resolved]
  - Anaphylactic reaction [Recovered/Resolved]
